FAERS Safety Report 12791916 (Version 1)
Quarter: 2016Q3

REPORT INFORMATION
  Report Type: Spontaneous
  Country: HK (occurrence: HK)
  Receive Date: 20160929
  Receipt Date: 20160929
  Transmission Date: 20161109
  Serious: Yes (Hospitalization)
  Sender: FDA-Public Use
  Company Number: HK-TOLMAR, INC.-2015HK009666

PATIENT
  Age: 56 Year
  Sex: Male
  Weight: 77 kg

DRUGS (2)
  1. ELIGARD [Suspect]
     Active Substance: LEUPROLIDE ACETATE
     Indication: PROSTATE CANCER
     Dosage: 22.5 MG, (TOTAL DAILY DOSE) 3 MONTHLY
     Route: 058
     Dates: start: 20150622, end: 20150622
  2. DIPHERELINE [Concomitant]
     Dosage: UNK
     Route: 065
     Dates: start: 20141218, end: 20150311

REACTIONS (1)
  - Blood pressure increased [Recovered/Resolved]

NARRATIVE: CASE EVENT DATE: 201507
